FAERS Safety Report 5624629-8 (Version None)
Quarter: 2008Q1

REPORT INFORMATION
  Report Type: 
  Country: None (occurrence: None)
  Receive Date: 20080213
  Receipt Date: 20080201
  Transmission Date: 20080703
  Serious: Yes (Other)
  Sender: FDA-Public Use
  Company Number: US-WYE-H02554108

PATIENT
  Sex: Female
  Weight: 91.71 kg

DRUGS (1)
  1. PREMARIN [Suspect]

REACTIONS (1)
  - TRANSIENT ISCHAEMIC ATTACK [None]
